FAERS Safety Report 6315427-0 (Version None)
Quarter: 2009Q3

REPORT INFORMATION
  Report Type: 
  Country: None (occurrence: None)
  Receive Date: 20090819
  Receipt Date: 20090807
  Transmission Date: 20100115
  Serious: Yes (Hospitalization)
  Sender: FDA-Public Use
  Company Number: DE-PFIZER INC-2009251583

PATIENT

DRUGS (1)
  1. LINEZOLID [Suspect]
     Dosage: 1200 MG, 1X/DAY
     Route: 042
     Dates: start: 20090712, end: 20090727

REACTIONS (1)
  - THROMBOCYTOPENIA [None]
